FAERS Safety Report 6413535-7 (Version None)
Quarter: 2009Q4

REPORT INFORMATION
  Report Type: 
  Country: None (occurrence: None)
  Receive Date: 20091026
  Receipt Date: 20091019
  Transmission Date: 20100525
  Serious: No
  Sender: FDA-Public Use
  Company Number: US-B.I. PHARMACEUTICALS,INC./RIDGEFIELD-2009-BP-12110BP

PATIENT
  Age: 70 Year
  Sex: Female

DRUGS (4)
  1. MICARDIS [Suspect]
     Indication: HYPERTENSION
     Dosage: 80 MG
     Route: 048
     Dates: start: 20081001
  2. THIAZIDE [Concomitant]
  3. TENORMIN [Concomitant]
  4. WELCHOL [Concomitant]

REACTIONS (3)
  - ALOPECIA [None]
  - BLOOD IRON DECREASED [None]
  - URINARY TRACT INFECTION [None]
